FAERS Safety Report 4579063-9 (Version None)
Quarter: 2005Q1

REPORT INFORMATION
  Report Type: 
  Country: None (occurrence: None)
  Receive Date: 20050211
  Receipt Date: 20050119
  Transmission Date: 20050727
  Serious: Yes (Other)
  Sender: FDA-Public Use
  Company Number: JP-MERCK-0501USA03487

PATIENT
  Age: 73 Year
  Sex: Male
  Weight: 52 kg

DRUGS (5)
  1. PRIMAXIN [Suspect]
     Indication: POSTOPERATIVE INFECTION
     Route: 042
     Dates: start: 20050108, end: 20050114
  2. PANSPORIN [Suspect]
     Indication: POSTOPERATIVE INFECTION
     Route: 051
     Dates: start: 20050106, end: 20050114
  3. CEFZON [Concomitant]
     Indication: POSTOPERATIVE INFECTION
     Route: 048
     Dates: start: 20050102, end: 20050106
  4. OMEPRAL [Concomitant]
     Indication: GASTRIC ULCER
     Route: 048
     Dates: start: 20050108, end: 20050111
  5. AMINO ACIDS (UNSPECIFIED) AND CARBOHYDRATES (UNSPECIFIED) AND ELECTROL [Concomitant]
     Indication: PARENTERAL NUTRITION
     Route: 065
     Dates: start: 20050109

REACTIONS (5)
  - BACTERIA SPUTUM IDENTIFIED [None]
  - DELIRIUM [None]
  - INAPPROPRIATE ANTIDIURETIC HORMONE SECRETION [None]
  - KLEBSIELLA INFECTION [None]
  - TREMOR [None]
